FAERS Safety Report 13396250 (Version 3)
Quarter: 2017Q2

REPORT INFORMATION
  Report Type: Spontaneous
  Country: SI (occurrence: SI)
  Receive Date: 20170403
  Receipt Date: 20170504
  Transmission Date: 20170830
  Serious: Yes (Other)
  Sender: FDA-Public Use
  Company Number: SI-B.I. PHARMACEUTICALS,INC./RIDGEFIELD-2017-BI-018764

PATIENT
  Age: 55 Year
  Sex: Male

DRUGS (3)
  1. OMNI OCAS [Suspect]
     Active Substance: TAMSULOSIN HYDROCHLORIDE
     Indication: PRODUCT USED FOR UNKNOWN INDICATION
     Dosage: ONSET DATE: 15-NOV-2016
     Route: 065
  2. VESOMNI [Suspect]
     Active Substance: SOLIFENACIN\TAMSULOSIN
     Indication: LOWER URINARY TRACT SYMPTOMS
  3. VESOMNI [Suspect]
     Active Substance: SOLIFENACIN\TAMSULOSIN
     Indication: MICTURITION URGENCY
     Dosage: ONSET DATE: 15-NOV-2016
     Route: 065

REACTIONS (3)
  - Hydronephrosis [Unknown]
  - Prostatitis [Recovered/Resolved]
  - Urinary retention [Unknown]

NARRATIVE: CASE EVENT DATE: 20161017
